FAERS Safety Report 7305048-5 (Version None)
Quarter: 2011Q1

REPORT INFORMATION
  Report Type: 
  Country: None (occurrence: None)
  Receive Date: 20110222
  Receipt Date: 20110211
  Transmission Date: 20110831
  Serious: Yes (Death)
  Sender: FDA-Public Use
  Company Number: US-CELGENEUS-163-21880-11021606

PATIENT
  Sex: Male

DRUGS (3)
  1. REVLIMID [Suspect]
     Dosage: 20-10MG
     Route: 048
     Dates: start: 20100101
  2. REVLIMID [Suspect]
     Route: 048
     Dates: start: 20100601
  3. REVLIMID [Suspect]
     Route: 048
     Dates: start: 20091101

REACTIONS (1)
  - DEATH [None]
